FAERS Safety Report 6450696-8 (Version None)
Quarter: 2009Q4

REPORT INFORMATION
  Report Type: 
  Country: None (occurrence: None)
  Receive Date: 20091123
  Receipt Date: 20091110
  Transmission Date: 20100525
  Serious: Yes (Hospitalization)
  Sender: FDA-Public Use
  Company Number: FR-ELI_LILLY_AND_COMPANY-FR200911003093

PATIENT
  Age: 50 Year
  Sex: Male

DRUGS (2)
  1. CIALIS [Suspect]
     Dosage: 20 MG, FOR THE FIRST TIME GIVEN BY A FRIEND AT MIDNIGHT
     Route: 048
  2. ALCOHOL [Concomitant]
     Dosage: MINOR LEVEL OF ALCOHOL IN THE BLOOD
     Route: 065

REACTIONS (1)
  - ACUTE CORONARY SYNDROME [None]
